FAERS Safety Report 8060728-1 (Version None)
Quarter: 2012Q1

REPORT INFORMATION
  Report Type: 
  Country: None (occurrence: None)
  Receive Date: 20120120
  Receipt Date: 20120113
  Transmission Date: 20120608
  Serious: Yes (Hospitalization)
  Sender: FDA-Public Use
  Company Number: KP-ASTRAZENECA-2010SE47856

PATIENT
  Age: 25642 Day
  Sex: Female

DRUGS (19)
  1. CIPLUS [Concomitant]
     Indication: VULVOVAGINITIS
  2. AGION [Concomitant]
     Indication: CONSTIPATION
     Dosage: 6G/PKG
  3. ASPIRIN [Concomitant]
     Indication: CORONARY ARTERY DISEASE
  4. ISOSORBIDE DINITRATE [Concomitant]
     Indication: CORONARY ARTERY DISEASE
     Route: 048
  5. NOVOLIN N [Concomitant]
     Route: 058
  6. ASPIRIN [Concomitant]
     Indication: CEREBROVASCULAR ACCIDENT
     Route: 048
     Dates: start: 20010113
  7. PLAVIX [Concomitant]
     Indication: CEREBROVASCULAR ACCIDENT
     Route: 048
     Dates: start: 20031031
  8. CARVEDILOL [Concomitant]
     Indication: HYPERTENSION
     Dates: start: 20050415
  9. TANATRIL [Concomitant]
     Indication: HYPERTENSION
     Route: 048
  10. CIPROFLOXACIN [Concomitant]
     Route: 048
     Dates: start: 20050629
  11. FUROSEMIDE [Concomitant]
     Indication: RENAL FAILURE CHRONIC
     Route: 048
  12. WARFARIN SODIUM [Concomitant]
     Route: 048
     Dates: start: 20050826
  13. FEXOFENADINE [Concomitant]
     Route: 048
  14. AMITRIPTYLINE HCL [Concomitant]
     Indication: DEPRESSION
     Route: 048
  15. ANGIO [Concomitant]
     Route: 048
  16. PLAVIX [Concomitant]
     Indication: CORONARY ARTERY DISEASE
     Route: 048
     Dates: start: 20031031
  17. CRESTOR [Suspect]
     Indication: HYPERLIPIDAEMIA
     Route: 048
     Dates: start: 20050706
  18. MOTILIUM-M [Concomitant]
     Indication: DYSPEPSIA
     Route: 048
     Dates: start: 20010113
  19. WARFARIN SODIUM [Concomitant]
     Indication: CORONARY ARTERY DISEASE
     Route: 048
     Dates: start: 20050101, end: 20050725

REACTIONS (3)
  - HYPERSOMNIA [None]
  - GASTRITIS HAEMORRHAGIC [None]
  - HYPOGLYCAEMIA [None]
